FAERS Safety Report 8405414-0 (Version None)
Quarter: 2012Q2

REPORT INFORMATION
  Report Type: 
  Country: None (occurrence: None)
  Receive Date: 20120604
  Receipt Date: 20120524
  Transmission Date: 20120825
  Serious: Yes (Life-Threatening, Hospitalization)
  Sender: FDA-Public Use
  Company Number: FR-BIOGENIDEC-2012BI018489

PATIENT
  Age: 56 Year
  Sex: Female

DRUGS (8)
  1. OMEPRAZOLE [Concomitant]
  2. BETASERC [Concomitant]
  3. PROGESTERONE [Concomitant]
  4. TANGANIL [Concomitant]
     Indication: MENIERE'S DISEASE
  5. LYRICA [Concomitant]
     Indication: PARAESTHESIA
  6. TYSABRI [Suspect]
     Indication: MULTIPLE SCLEROSIS
     Route: 042
     Dates: start: 20070501, end: 20090301
  7. SOLU-MEDROL [Concomitant]
     Indication: MULTIPLE SCLEROSIS
     Dates: start: 20090301, end: 20120404
  8. ALFUZOSIN HCL [Concomitant]

REACTIONS (1)
  - ACUTE MYELOID LEUKAEMIA [None]
